FAERS Safety Report 8682339 (Version 4)
Quarter: 2012Q4

REPORT INFORMATION
  Report Type: 
  Country: US (occurrence: US)
  Receive Date: 20120725
  Receipt Date: 20120913
  Transmission Date: 20130627
  Serious: No
  Sender: FDA-Public Use
  Company Number: US-ASTRAZENECA-2012SE48167

PATIENT
  Age: 50 Year
  Sex: Female

DRUGS (6)
  1. NEXIUM [Suspect]
     Route: 048
  2. ZOMIG [Suspect]
     Indication: MIGRAINE
     Route: 048
     Dates: start: 2007, end: 2009
  3. ZOMIG [Suspect]
     Indication: CLUSTER HEADACHE
     Route: 048
     Dates: start: 2007, end: 2009
  4. ZOMIG [Suspect]
     Indication: MIGRAINE
     Route: 048
     Dates: start: 2009
  5. ZOMIG [Suspect]
     Indication: CLUSTER HEADACHE
     Route: 048
     Dates: start: 2009
  6. INDERAL [Concomitant]
     Indication: MIGRAINE

REACTIONS (11)
  - Viral infection [Unknown]
  - Memory impairment [Unknown]
  - Migraine [Unknown]
  - Gastroenteritis viral [Unknown]
  - Blood pressure abnormal [Unknown]
  - Haemoptysis [Unknown]
  - Malaise [Unknown]
  - Nausea [Unknown]
  - Menopause [Unknown]
  - Drug dose omission [Unknown]
  - Drug ineffective [Unknown]
